FAERS Safety Report 5809701-1 (Version None)
Quarter: 2008Q3

REPORT INFORMATION
  Report Type: 
  Country: None (occurrence: None)
  Receive Date: 20080711
  Receipt Date: 20080711
  Transmission Date: 20090109
  Serious: Yes (Disabling, Other)
  Sender: FDA-Public Use
  Company Number: None

PATIENT
  Age: 25 Year
  Sex: Female

DRUGS (1)
  1. MIRENA [Suspect]
     Indication: CONTRACEPTION
     Dosage: 1- IUD 365 DAYS A YEAR INTRA-UTERINE
     Route: 015
     Dates: start: 20060901, end: 20071031

REACTIONS (18)
  - ACNE [None]
  - ALOPECIA [None]
  - AMENORRHOEA [None]
  - ARTHRALGIA [None]
  - BACK PAIN [None]
  - DEPRESSION [None]
  - GAIT DISTURBANCE [None]
  - INSOMNIA [None]
  - IRRITABILITY [None]
  - JOINT SWELLING [None]
  - LOSS OF LIBIDO [None]
  - MOOD SWINGS [None]
  - OEDEMA PERIPHERAL [None]
  - PAIN IN EXTREMITY [None]
  - SCAR [None]
  - SCREAMING [None]
  - SUICIDAL IDEATION [None]
  - WEIGHT INCREASED [None]
